FAERS Safety Report 5612618-9 (Version None)
Quarter: 2008Q1

REPORT INFORMATION
  Report Type: 
  Country: None (occurrence: None)
  Receive Date: 20080204
  Receipt Date: 20080124
  Transmission Date: 20080703
  Serious: Yes (Other)
  Sender: FDA-Public Use
  Company Number: B0505524A

PATIENT
  Age: 26 Year
  Sex: Female

DRUGS (2)
  1. FORMIGRAN [Suspect]
     Indication: MIGRAINE
     Dosage: 1TAB PER DAY
     Route: 048
     Dates: start: 20060901, end: 20070101
  2. MINISISTON [Suspect]
     Indication: CONTRACEPTION
     Route: 065

REACTIONS (4)
  - DRUG EXPOSURE DURING PREGNANCY [None]
  - DRUG INTERACTION [None]
  - PREGNANCY ON CONTRACEPTIVE [None]
  - UNINTENDED PREGNANCY [None]
